FAERS Safety Report 13348032 (Version 1)
Quarter: 2017Q1

REPORT INFORMATION
  Report Type: Spontaneous
  Country: US (occurrence: US)
  Receive Date: 20170318
  Receipt Date: 20170318
  Transmission Date: 20170428
  Serious: Yes (Other)
  Sender: FDA-Public Use
  Company Number: US-AMGEN-USASP2017038390

PATIENT
  Age: 73 Year
  Sex: Male
  Weight: 248 kg

DRUGS (9)
  1. ENBREL [Suspect]
     Active Substance: ETANERCEPT
     Indication: PSORIASIS
  2. CELEBREX [Suspect]
     Active Substance: CELECOXIB
     Indication: PRODUCT USED FOR UNKNOWN INDICATION
     Dosage: UNK
     Route: 065
     Dates: start: 2004, end: 2005
  3. ALEVE [Suspect]
     Active Substance: NAPROXEN SODIUM
     Indication: PRODUCT USED FOR UNKNOWN INDICATION
     Dosage: UNK
     Route: 065
     Dates: start: 2005, end: 2006
  4. ENBREL [Suspect]
     Active Substance: ETANERCEPT
     Indication: PSORIATIC ARTHROPATHY
     Dosage: UNK
     Route: 065
     Dates: start: 20030905, end: 20140319
  5. ORUVAIL [Suspect]
     Active Substance: KETOPROFEN
     Indication: PRODUCT USED FOR UNKNOWN INDICATION
     Dosage: UNK
     Route: 065
     Dates: start: 20000210, end: 2008
  6. VIOXX [Suspect]
     Active Substance: ROFECOXIB
     Indication: PRODUCT USED FOR UNKNOWN INDICATION
     Dosage: UNK
     Route: 065
  7. RELAFEN [Suspect]
     Active Substance: NABUMETONE
     Indication: PRODUCT USED FOR UNKNOWN INDICATION
     Dosage: UNK
     Route: 065
     Dates: start: 20060206, end: 2008
  8. RELAFEN [Suspect]
     Active Substance: NABUMETONE
     Dosage: UNK
     Route: 065
     Dates: start: 20110112, end: 2013
  9. LISINOPRIL. [Suspect]
     Active Substance: LISINOPRIL
     Indication: PRODUCT USED FOR UNKNOWN INDICATION
     Dosage: UNK
     Route: 065

REACTIONS (30)
  - Synovial rupture [Unknown]
  - Gastrooesophageal reflux disease [Unknown]
  - Nasal congestion [Unknown]
  - Red blood cell count decreased [Unknown]
  - Haemoglobin decreased [Unknown]
  - Temperature intolerance [Unknown]
  - Nocturia [Unknown]
  - Oedema [Unknown]
  - Type 2 diabetes mellitus [Recovering/Resolving]
  - Drug ineffective [Unknown]
  - Vitamin D deficiency [Unknown]
  - Peripheral vascular disorder [Unknown]
  - Dyspnoea exertional [Unknown]
  - Dizziness [Unknown]
  - Contusion [Unknown]
  - Coronary artery disease [Not Recovered/Not Resolved]
  - Foot deformity [Unknown]
  - Hyperkeratosis [Unknown]
  - Anaemia [Unknown]
  - Chest pain [Unknown]
  - Hip arthroplasty [Unknown]
  - White blood cell count increased [Unknown]
  - Haematocrit decreased [Unknown]
  - Rectal haemorrhage [Unknown]
  - Joint range of motion decreased [Unknown]
  - Chronic kidney disease [Unknown]
  - Coronary artery bypass [Unknown]
  - Dupuytren^s contracture [Unknown]
  - Red blood cell sedimentation rate increased [Unknown]
  - Globulins increased [Unknown]

NARRATIVE: CASE EVENT DATE: 2007
